FAERS Safety Report 4519438-7 (Version None)
Quarter: 2004Q4

REPORT INFORMATION
  Report Type: 
  Country: None (occurrence: None)
  Receive Date: 20041202
  Receipt Date: 20041119
  Transmission Date: 20050328
  Serious: Yes (Hospitalization, Other)
  Sender: FDA-Public Use
  Company Number: 2004097225

PATIENT
  Age: 59 Year
  Sex: Female

DRUGS (2)
  1. EXEMESTANE           (EXEMESTANE) [Suspect]
     Indication: CHEMOTHERAPY
     Dosage: 25 MG (25 MG), ORAL
     Route: 048
     Dates: start: 20041020
  2. UFT [Suspect]
     Indication: CHEMOTHERAPY
     Dosage: ORAL
     Route: 048
     Dates: start: 20041020, end: 20041114

REACTIONS (6)
  - ALANINE AMINOTRANSFERASE INCREASED [None]
  - ASCITES [None]
  - ASPARTATE AMINOTRANSFERASE INCREASED [None]
  - HEPATIC FUNCTION ABNORMAL [None]
  - JAUNDICE [None]
  - PYREXIA [None]
